FAERS Safety Report 14446819 (Version 3)
Quarter: 2018Q2

REPORT INFORMATION
  Report Type: Spontaneous
  Country: JP (occurrence: JP)
  Receive Date: 20180126
  Receipt Date: 20180507
  Transmission Date: 20180711
  Serious: Yes (Hospitalization)
  Sender: FDA-Public Use
  Company Number: PHJP2017JP031841

PATIENT
  Age: 7 Year
  Sex: Female

DRUGS (6)
  1. PREDONINE [Suspect]
     Active Substance: PREDNISOLONE
     Indication: PRODUCT USED FOR UNKNOWN INDICATION
     Dosage: 30 MG, UNK
     Route: 065
     Dates: start: 20171025
  2. ITRIZOLE [Interacting]
     Active Substance: ITRACONAZOLE
     Indication: PROPHYLAXIS
     Dosage: 100 MG, UNK
     Route: 048
  3. SANDIMMUN INFUSION [Suspect]
     Active Substance: CYCLOSPORINE
     Indication: STILL^S DISEASE
     Dosage: UNK
     Route: 041
     Dates: start: 20171016, end: 20171022
  4. ALFACALCIDOL [Concomitant]
     Active Substance: ALFACALCIDOL
     Indication: PRODUCT USED FOR UNKNOWN INDICATION
     Dosage: UNK
     Route: 065
  5. RIBOVIX [Concomitant]
     Indication: PRODUCT USED FOR UNKNOWN INDICATION
     Dosage: UNK
     Route: 065
  6. DEXAMETHASONE PALMITATE [Concomitant]
     Active Substance: DEXAMETHASONE
     Indication: PRODUCT USED FOR UNKNOWN INDICATION
     Dosage: UNK
     Route: 065

REACTIONS (5)
  - Reversible cerebral vasoconstriction syndrome [Recovered/Resolved]
  - Product use in unapproved indication [Unknown]
  - Posterior reversible encephalopathy syndrome [Recovered/Resolved]
  - Headache [Recovered/Resolved]
  - Drug interaction [Unknown]

NARRATIVE: CASE EVENT DATE: 20171016
